FAERS Safety Report 23266253 (Version 1)
Quarter: 2023Q4

REPORT INFORMATION
  Report Type: Spontaneous
  Country: US (occurrence: US)
  Receive Date: 20231206
  Receipt Date: 20231206
  Transmission Date: 20240110
  Serious: Yes (Other)
  Sender: FDA-Public Use
  Company Number: US-STRIDES ARCOLAB LIMITED-2023SP006189

PATIENT
  Age: 22 Year
  Sex: Male

DRUGS (2)
  1. BACLOFEN [Suspect]
     Active Substance: BACLOFEN
     Indication: Myokymia
     Dosage: 60 MILLIGRAM PER DAY, FOR THE MINIMAL DURATION OF 4 WEEKS
     Route: 065
  2. GABAPENTIN [Suspect]
     Active Substance: GABAPENTIN
     Indication: Myokymia
     Dosage: 3600 MILLIGRAM PER DAY, FOR THE MINIMAL DURATION OF 4 WEEKS
     Route: 065

REACTIONS (1)
  - Drug ineffective for unapproved indication [Unknown]
